FAERS Safety Report 5526091-2 (Version None)
Quarter: 2007Q4

REPORT INFORMATION
  Report Type: 
  Country: None (occurrence: None)
  Receive Date: 20071120
  Receipt Date: 20071105
  Transmission Date: 20080405
  Serious: Yes (Other)
  Sender: FDA-Public Use
  Company Number: 100#08#2007-04630

PATIENT
  Age: 30 Year
  Sex: Female

DRUGS (3)
  1. METHYLPREDNISOLONE [Suspect]
     Indication: SYSTEMIC LUPUS ERYTHEMATOSUS
     Dosage: (2 COURSES OF PULSE THERAPY)
  2. PREDNISOLONE [Suspect]
     Indication: SYSTEMIC LUPUS ERYTHEMATOSUS
     Dosage: TAPERED TO 30 MG/DAY ORAL
     Route: 048
  3. IMMUNOSUPPRESANTS (IMMUNOSUPPRESSIVE AGENTS) (IMMUNOSUPPRESANTS) [Suspect]
     Indication: SYSTEMIC LUPUS ERYTHEMATOSUS

REACTIONS (4)
  - CYTOMEGALOVIRUS COLITIS [None]
  - MUSCLE ATROPHY [None]
  - PNEUMOCYSTIS JIROVECI PNEUMONIA [None]
  - PULMONARY ALVEOLAR HAEMORRHAGE [None]
